FAERS Safety Report 13008261 (Version 3)
Quarter: 2017Q1

REPORT INFORMATION
  Report Type: Report from Study
  Country: AU (occurrence: AU)
  Receive Date: 20161208
  Receipt Date: 20170119
  Transmission Date: 20170428
  Serious: Yes (Disabling, Other)
  Sender: FDA-Public Use
  Company Number: AU-ROCHE-1859439

PATIENT
  Age: 72 Year
  Sex: Female

DRUGS (2)
  1. ACTEMRA [Suspect]
     Active Substance: TOCILIZUMAB
     Indication: RHEUMATOID ARTHRITIS
     Route: 058
     Dates: start: 20161201
  2. ACTEMRA [Suspect]
     Active Substance: TOCILIZUMAB
     Indication: RHEUMATOID ARTHRITIS
     Route: 042
     Dates: start: 20110930, end: 20151230

REACTIONS (9)
  - Oedema peripheral [Unknown]
  - Bedridden [Not Recovered/Not Resolved]
  - Mobility decreased [Unknown]
  - Oxygen supplementation [Not Recovered/Not Resolved]
  - Muscle atrophy [Unknown]
  - Arthralgia [Unknown]
  - Muscular weakness [Unknown]
  - Pain in extremity [Unknown]
  - Musculoskeletal pain [Unknown]

NARRATIVE: CASE EVENT DATE: 20161201
